FAERS Safety Report 23346277 (Version 1)
Quarter: 2023Q4

REPORT INFORMATION
  Report Type: Spontaneous
  Country: US (occurrence: US)
  Receive Date: 20231228
  Receipt Date: 20231228
  Transmission Date: 20240110
  Serious: No
  Sender: FDA-Public Use
  Company Number: US-PFIZER INC-202300442868

PATIENT
  Age: 14 Year
  Sex: Male
  Weight: 43.084 kg

DRUGS (2)
  1. GENOTROPIN [Suspect]
     Active Substance: SOMATROPIN
     Indication: Growth hormone deficiency
     Dosage: ALTERNATE EVERY NIGHT BETWEEN 1.8MG AND 2.0MG
     Dates: start: 20231202
  2. GENOTROPIN [Suspect]
     Active Substance: SOMATROPIN
     Dosage: ALTERNATE EVERY NIGHT BETWEEN 1.8MG AND 2.0MG
     Dates: start: 20231202

REACTIONS (6)
  - Drug dose omission by device [Unknown]
  - Device mechanical issue [Unknown]
  - Device leakage [Unknown]
  - Device information output issue [Unknown]
  - Product prescribing error [Unknown]
  - Incorrect dose administered [Unknown]
